FAERS Safety Report 8985971 (Version 1)
Quarter: 2012Q4

REPORT INFORMATION
  Report Type: 
  Country: TR (occurrence: TR)
  Receive Date: 20121226
  Receipt Date: 20121226
  Transmission Date: 20130627
  Serious: Yes (Other)
  Sender: FDA-Public Use
  Company Number: TR-SANOFI-AVENTIS-2012SA093288

PATIENT
  Age: 55 Year
  Sex: Male

DRUGS (6)
  1. FLUOROURACIL [Suspect]
     Indication: NASOPHARYNGEAL CANCER
     Dosage: day 1-5 infusion therapy
     Route: 065
  2. FLUOROURACIL [Suspect]
     Indication: NON-SMALL CELL LUNG CANCER METASTATIC
     Dosage: day 1-5 infusion therapy
     Route: 065
  3. DOCETAXEL [Suspect]
     Indication: NASOPHARYNGEAL CANCER
     Dosage: day 1 infusion therapy
     Route: 065
  4. DOCETAXEL [Suspect]
     Indication: NON-SMALL CELL LUNG CANCER METASTATIC
     Dosage: day 1 infusion therapy
     Route: 065
  5. CISPLATIN [Suspect]
     Indication: NASOPHARYNGEAL CANCER
     Dosage: day 1 infusion therapy
     Route: 065
  6. CISPLATIN [Suspect]
     Indication: NON-SMALL CELL LUNG CANCER METASTATIC
     Dosage: day 1 infusion therapy
     Route: 065

REACTIONS (4)
  - Pericarditis [Recovered/Resolved]
  - Chest pain [Recovered/Resolved]
  - Electrocardiogram ST segment elevation [Recovered/Resolved]
  - Troponin I increased [Recovered/Resolved]
